FAERS Safety Report 5703403-8 (Version None)
Quarter: 2008Q2

REPORT INFORMATION
  Report Type: 
  Country: None (occurrence: None)
  Receive Date: 20080411
  Receipt Date: 20080402
  Transmission Date: 20081010
  Serious: Yes (Other)
  Sender: FDA-Public Use
  Company Number: US-PFIZER INC-2008029147

PATIENT
  Sex: Male
  Weight: 81.6 kg

DRUGS (3)
  1. LIPITOR [Suspect]
     Indication: BLOOD CHOLESTEROL INCREASED
     Route: 048
  2. GLUCOTROL XL [Concomitant]
  3. INSULIN [Concomitant]

REACTIONS (1)
  - VASCULAR GRAFT [None]
